FAERS Safety Report 7562469-3 (Version None)
Quarter: 2011Q2

REPORT INFORMATION
  Report Type: 
  Country: None (occurrence: None)
  Receive Date: 20110614
  Receipt Date: 20110601
  Transmission Date: 20111010
  Serious: Yes (Other)
  Sender: FDA-Public Use
  Company Number: 2011MA006653

PATIENT
  Age: 22 Year
  Sex: Male

DRUGS (4)
  1. PHENOBARBITAL TAB [Concomitant]
  2. ETHOSUXIMIDE [Concomitant]
  3. CARBAMAZEPINE [Suspect]
     Indication: CONVULSION
  4. VALPROIC ACID [Concomitant]

REACTIONS (2)
  - HEPATIC ADENOMA [None]
  - MUSCULOSKELETAL PAIN [None]
